FAERS Safety Report 4974594-1 (Version None)
Quarter: 2006Q2

REPORT INFORMATION
  Report Type: 
  Country: None (occurrence: None)
  Receive Date: 20060410
  Receipt Date: 20060329
  Transmission Date: 20061013
  Serious: Yes (Other)
  Sender: FDA-Public Use
  Company Number: 2006045864

PATIENT
  Age: 49 Year
  Sex: Male
  Weight: 85 kg

DRUGS (8)
  1. SOMAVERT [Suspect]
     Indication: ACROMEGALY
     Dosage: 10 MG (10 MG DAILY) SUBCUTANEOUS
     Route: 058
     Dates: start: 20040212, end: 20040502
  2. HYDROCORTISONE [Concomitant]
  3. LEVOTHYROXINE SODIUM [Concomitant]
  4. SOMATULINE PR (LANREOTIDE) [Concomitant]
  5. PRAVIDEL (BROMOCRIPTINE MESILATE) [Concomitant]
  6. DOSTINEX [Concomitant]
  7. SANDOSTATIN [Concomitant]
  8. TESTOSTERONE [Concomitant]

REACTIONS (1)
  - PITUITARY TUMOUR RECURRENT [None]
